FAERS Safety Report 12465277 (Version 3)
Quarter: 2016Q3

REPORT INFORMATION
  Report Type: Report from Study
  Country: US (occurrence: US)
  Receive Date: 20160614
  Receipt Date: 20160822
  Transmission Date: 20161109
  Serious: Yes (Hospitalization)
  Sender: FDA-Public Use
  Company Number: US-CELGENEUS-USA-2016022659

PATIENT
  Age: 57 Year
  Sex: Male
  Weight: 108.96 kg

DRUGS (14)
  1. AMOXICILLIN. [Concomitant]
     Active Substance: AMOXICILLIN
     Indication: RESPIRATORY TRACT CONGESTION
     Dosage: 120 GRAM
     Route: 048
     Dates: start: 20110507, end: 20110517
  2. CLOBETASOL [Concomitant]
     Active Substance: CLOBETASOL
     Indication: PSORIASIS
     Route: 061
     Dates: start: 20120125
  3. CC-10004 [Suspect]
     Active Substance: APREMILAST
     Route: 048
     Dates: start: 20160210
  4. KETOCONAZOLE. [Concomitant]
     Active Substance: KETOCONAZOLE
     Indication: PSORIASIS
     Dosage: 1.5 MILLIGRAM
     Route: 061
     Dates: start: 20121025, end: 20121115
  5. AMOXICILLIN. [Concomitant]
     Active Substance: AMOXICILLIN
     Indication: PHARYNGITIS
     Dosage: 120 GRAM
     Route: 048
     Dates: start: 20111121, end: 20111126
  6. ATORVASTATIN [Concomitant]
     Active Substance: ATORVASTATIN
     Indication: DYSLIPIDAEMIA
     Dosage: 5 MILLIGRAM
     Route: 048
     Dates: start: 2014
  7. ANZITOR [Concomitant]
     Indication: DYSLIPIDAEMIA
     Dosage: 12.5 MILLIGRAM
     Route: 048
     Dates: start: 2000, end: 2014
  8. HCTZ [Concomitant]
     Active Substance: HYDROCHLOROTHIAZIDE
     Indication: HYPERTENSION
     Route: 048
     Dates: start: 2009
  9. AMOXICILLIN. [Concomitant]
     Active Substance: AMOXICILLIN
     Dosage: 500 MILLIGRAM
     Route: 048
     Dates: start: 20130615, end: 20130625
  10. LIDOCAINE WITH EPINEPHRINE [Concomitant]
     Active Substance: EPINEPHRINE BITARTRATE\LIDOCAINE HYDROCHLORIDE
     Indication: ANGIOKERATOMA
     Route: 050
     Dates: start: 20121024, end: 20121024
  11. AZITHROMYCIN ANHYDROUS. [Concomitant]
     Active Substance: AZITHROMYCIN ANHYDROUS
     Indication: OROPHARYNGEAL PAIN
     Dosage: 40 MILLIGRAM
     Route: 048
     Dates: start: 20151101, end: 20151105
  12. AZITHROMYCIN ANHYDROUS. [Concomitant]
     Active Substance: AZITHROMYCIN ANHYDROUS
     Indication: COUGH
     Route: 048
     Dates: start: 201601, end: 201601
  13. CC-10004 [Suspect]
     Active Substance: APREMILAST
     Indication: PSORIASIS
     Route: 048
     Dates: start: 20120420, end: 20160209
  14. AMLODIPINE [Concomitant]
     Active Substance: AMLODIPINE BESYLATE
     Indication: HYPERTENSION
     Dosage: 10 MILLIGRAM
     Route: 048
     Dates: start: 2000

REACTIONS (1)
  - Pneumonia [Recovered/Resolved]

NARRATIVE: CASE EVENT DATE: 20160209
